FAERS Safety Report 17652264 (Version 1)
Quarter: 2020Q2

REPORT INFORMATION
  Report Type: Spontaneous
  Country: US (occurrence: US)
  Receive Date: 20200409
  Receipt Date: 20200409
  Transmission Date: 20200713
  Serious: Yes (Disabling)
  Sender: FDA-Public Use
  Company Number: US-AMERICAN REGENT INC-20191451

PATIENT
  Age: 68 Year
  Sex: Male
  Weight: 78.46 kg

DRUGS (33)
  1. CLARITIN [Concomitant]
     Active Substance: LORATADINE
     Indication: SINUS DISORDER
     Dosage: 10 MILLIGRAM, QD PRN
     Route: 048
     Dates: start: 2015
  2. INJECTAFER [Suspect]
     Active Substance: FERRIC CARBOXYMALTOSE
     Indication: IRON DEFICIENCY ANAEMIA
     Dosage: 750 MG; WEEKLY, BIWEEKLY AND/OR MONTHLY RECEIVED 41 TIMES
     Dates: start: 201705, end: 20190304
  3. INJECTAFER [Suspect]
     Active Substance: FERRIC CARBOXYMALTOSE
     Dosage: 750 MILLIGRAM, SINGLE
     Route: 042
     Dates: start: 20180416, end: 20180416
  4. INJECTAFER [Suspect]
     Active Substance: FERRIC CARBOXYMALTOSE
     Dosage: 750 MILLIGRAM, SINGLE
     Route: 042
     Dates: start: 20180611, end: 20180611
  5. INJECTAFER [Suspect]
     Active Substance: FERRIC CARBOXYMALTOSE
     Dosage: 750 MILLIGRAM, SINGLE
     Route: 042
     Dates: start: 20180806, end: 20180806
  6. INJECTAFER [Suspect]
     Active Substance: FERRIC CARBOXYMALTOSE
     Dosage: 750 MILLIGRAM, SINGLE
     Route: 042
     Dates: start: 20190114, end: 20190114
  7. LEVAQUIN [Concomitant]
     Active Substance: LEVOFLOXACIN
     Indication: PRODUCT USED FOR UNKNOWN INDICATION
     Dosage: 500 MILLIGRAM, QD
     Route: 048
  8. CLARITIN [Concomitant]
     Active Substance: LORATADINE
     Indication: HYPERSENSITIVITY
  9. INJECTAFER [Suspect]
     Active Substance: FERRIC CARBOXYMALTOSE
     Dosage: 750 MILLIGRAM, SINGLE
     Route: 042
     Dates: start: 201712, end: 201712
  10. INJECTAFER [Suspect]
     Active Substance: FERRIC CARBOXYMALTOSE
     Dosage: 750 MILLIGRAM, SINGLE
     Route: 042
     Dates: start: 20180707, end: 20180707
  11. INJECTAFER [Suspect]
     Active Substance: FERRIC CARBOXYMALTOSE
     Dosage: 750 MILLIGRAM, SINGLE
     Route: 042
     Dates: start: 201810, end: 201810
  12. INJECTAFER [Suspect]
     Active Substance: FERRIC CARBOXYMALTOSE
     Dosage: 750 MILLIGRAM, SINGLE
     Route: 042
     Dates: start: 20181105, end: 20181105
  13. INJECTAFER [Suspect]
     Active Substance: FERRIC CARBOXYMALTOSE
     Dosage: 750 MILLIGRAM, SINGLE
     Route: 042
     Dates: start: 201711, end: 201711
  14. INJECTAFER [Suspect]
     Active Substance: FERRIC CARBOXYMALTOSE
     Dosage: 750 MILLIGRAM, SINGLE
     Route: 042
     Dates: start: 20180709, end: 20180709
  15. INJECTAFER [Suspect]
     Active Substance: FERRIC CARBOXYMALTOSE
     Dosage: 750 MILLIGRAM, SINGLE
     Route: 042
     Dates: start: 20180924, end: 20180924
  16. CALCIUM 600 + D [Concomitant]
     Active Substance: CALCIUM\VITAMIN D
     Indication: OSTEOPENIA
     Dosage: 1200 MILIGRAM
     Route: 048
     Dates: start: 2016
  17. INJECTAFER [Suspect]
     Active Substance: FERRIC CARBOXYMALTOSE
     Dosage: 750 MILLIGRAM, SINGLE
     Route: 042
     Dates: start: 201706, end: 201706
  18. INJECTAFER [Suspect]
     Active Substance: FERRIC CARBOXYMALTOSE
     Dosage: 750 MILLIGRAM, SINGLE
     Route: 042
     Dates: start: 201708, end: 201708
  19. INJECTAFER [Suspect]
     Active Substance: FERRIC CARBOXYMALTOSE
     Dosage: 750 MILLIGRAM, SINGLE
     Route: 042
     Dates: start: 201803, end: 201803
  20. INJECTAFER [Suspect]
     Active Substance: FERRIC CARBOXYMALTOSE
     Dosage: 750 MILLIGRAM, SINGLE
     Route: 042
     Dates: start: 20180507, end: 20180507
  21. INJECTAFER [Suspect]
     Active Substance: FERRIC CARBOXYMALTOSE
     Dosage: 750 MILLIGRAM, SINGLE
     Route: 042
     Dates: start: 20180827, end: 20180827
  22. INJECTAFER [Suspect]
     Active Substance: FERRIC CARBOXYMALTOSE
     Indication: HEREDITARY HAEMORRHAGIC TELANGIECTASIA
     Dosage: 750 MILLIGRAM X 2
     Route: 042
     Dates: start: 20170522, end: 20170522
  23. INJECTAFER [Suspect]
     Active Substance: FERRIC CARBOXYMALTOSE
     Dosage: 750 MILLIGRAM, SINGLE
     Route: 042
     Dates: start: 201709, end: 201709
  24. FLUTICASONE PROPIONATE. [Concomitant]
     Active Substance: FLUTICASONE PROPIONATE
     Indication: EPISTAXIS
     Dosage: 2 SPRAYS EACH NOSTRIL, QD
     Route: 045
     Dates: start: 201505
  25. INJECTAFER [Suspect]
     Active Substance: FERRIC CARBOXYMALTOSE
     Dosage: 750 MILLIGRAM, SINGLE
     Route: 042
     Dates: start: 20170710, end: 20170710
  26. INJECTAFER [Suspect]
     Active Substance: FERRIC CARBOXYMALTOSE
     Dosage: 750 MILLIGRAM, SINGLE
     Route: 042
     Dates: start: 20181119, end: 20181119
  27. INJECTAFER [Suspect]
     Active Substance: FERRIC CARBOXYMALTOSE
     Dosage: 750 MILLIGRAM, SINGLE
     Route: 042
     Dates: start: 201710, end: 201710
  28. INJECTAFER [Suspect]
     Active Substance: FERRIC CARBOXYMALTOSE
     Dosage: 750 MILLIGRAM, SINGLE
     Route: 042
     Dates: start: 201801, end: 201801
  29. INJECTAFER [Suspect]
     Active Substance: FERRIC CARBOXYMALTOSE
     Dosage: 750 MILLIGRAM, SINGLE
     Route: 042
     Dates: start: 201802, end: 201802
  30. INJECTAFER [Suspect]
     Active Substance: FERRIC CARBOXYMALTOSE
     Dosage: 750 MILLIGRAM, SINGLE
     Route: 042
     Dates: start: 20181231, end: 20181231
  31. CALCIUM 600 + D [Concomitant]
     Active Substance: CALCIUM\VITAMIN D
     Indication: OSTEOPOROSIS
     Dosage: TWO TABLETS
     Route: 048
  32. MULTI VITAMIN [Concomitant]
     Active Substance: VITAMINS
     Indication: OSTEOPOROSIS
     Dosage: 1 TABLET , QD
     Route: 048
     Dates: start: 2016
  33. AMOXICILLIN. [Concomitant]
     Active Substance: AMOXICILLIN
     Indication: PROPHYLAXIS
     Dosage: 4 CAPSULES 30-60 MIN PRIOR TO DENTAL PROCEDURE
     Route: 065

REACTIONS (17)
  - Gait disturbance [Recovering/Resolving]
  - Hypophosphataemia [Recovering/Resolving]
  - Joint range of motion decreased [Recovering/Resolving]
  - Arthralgia [Recovering/Resolving]
  - Hypophosphataemic osteomalacia [Not Recovered/Not Resolved]
  - Product quality issue [Unknown]
  - Impaired self-care [Not Recovered/Not Resolved]
  - Stress fracture [Not Recovered/Not Resolved]
  - Osteomalacia [Not Recovered/Not Resolved]
  - Back pain [Recovering/Resolving]
  - Inappropriate schedule of product administration [Unknown]
  - Pain [Recovering/Resolving]
  - Anxiety [Not Recovered/Not Resolved]
  - Product use in unapproved indication [Unknown]
  - Pain in extremity [Recovering/Resolving]
  - Anhedonia [Not Recovered/Not Resolved]
  - Emotional distress [Not Recovered/Not Resolved]

NARRATIVE: CASE EVENT DATE: 201705
